FAERS Safety Report 9774627 (Version 1)
Quarter: 2013Q4

REPORT INFORMATION
  Report Type: Spontaneous
  Country: GB (occurrence: GB)
  Receive Date: 20131220
  Receipt Date: 20131220
  Transmission Date: 20140711
  Serious: Yes (Life-Threatening)
  Sender: FDA-Public Use
  Company Number: GB-TEVA-451163ISR

PATIENT
  Age: 73 Year
  Sex: Female

DRUGS (10)
  1. METFORMIN [Suspect]
     Indication: DIABETES MELLITUS
     Dosage: 1500 MILLIGRAM DAILY; LONG TERM, UNSURE HOW LONG IT HAS BEEN PRESCRIBED
     Route: 048
     Dates: end: 20131125
  2. CICLOSPORIN [Suspect]
     Indication: AUTOIMMUNE HAEMOLYTIC ANAEMIA
     Dosage: 100 MILLIGRAM DAILY; 50MG TWICE DAILY FOR 9 DAYS, THEN 25MG TWICE DAILY FOR 1 DAY THEN STOPPED
     Route: 048
     Dates: start: 20131116, end: 20131125
  3. CICLOSPORIN [Suspect]
     Indication: AUTOIMMUNE HAEMOLYTIC ANAEMIA
     Dosage: 50 MILLIGRAM DAILY; 50MG TWICE DAILY FOR 9 DAYS, THEN 25MG TWICE DAILY FOR 1 DAY THEN STOPPED
     Route: 048
     Dates: start: 20131126, end: 20131127
  4. IRBESARTAN [Suspect]
     Indication: HYPERTENSION
     Dosage: 150 MILLIGRAM DAILY; 150MG ONCE DAILY, BEEN ON LONG TERM, UNSURE HOW LONG EXACTLY
     Route: 048
     Dates: end: 20131125
  5. ISOSORBIDE MONONITRATE [Concomitant]
  6. CARBOCISTEINE [Concomitant]
  7. FOLIC ACID [Concomitant]
  8. EFUDIX [Concomitant]
  9. BISOPROLOL [Concomitant]
  10. MABTHERA [Concomitant]

REACTIONS (1)
  - Renal failure [Unknown]
